FAERS Safety Report 23843061 (Version 1)
Quarter: 2024Q2

REPORT INFORMATION
  Report Type: Spontaneous
  Country: US (occurrence: None)
  Receive Date: 20240509
  Receipt Date: 20240509
  Transmission Date: 20240716
  Serious: No
  Sender: FDA-Public Use
  Company Number: None

PATIENT
  Sex: Male

DRUGS (10)
  1. VIGABATRIN [Suspect]
     Active Substance: VIGABATRIN
     Indication: Partial seizures
     Dosage: FREQUENCY : TWICE A DAY;?
     Route: 048
  2. VIGABATRIN [Suspect]
     Active Substance: VIGABATRIN
     Indication: Partial seizures
  3. KEPPRA [Concomitant]
     Active Substance: LEVETIRACETAM
  4. TOPAMAX [Concomitant]
     Active Substance: TOPIRAMATE
  5. METRONIDAZOLE [Concomitant]
     Active Substance: METRONIDAZOLE
  6. CARGLUMIC ACID [Concomitant]
     Active Substance: CARGLUMIC ACID
  7. OMEPRAZOLE [Concomitant]
     Active Substance: DONEPEZIL HYDROCHLORIDE\OMEPRAZOLE\OMEPRAZOLE MAGNESIUM
  8. BIOTIN [Concomitant]
     Active Substance: BIOTIN
  9. LEVOCARNITINE [Concomitant]
     Active Substance: LEVOCARNITINE
  10. VALINE [Concomitant]
     Active Substance: VALINE

REACTIONS (6)
  - Product communication issue [None]
  - Manufacturing product shipping issue [None]
  - Product distribution issue [None]
  - Treatment delayed [None]
  - Product use issue [None]
  - Seizure [None]
